FAERS Safety Report 25112554 (Version 2)
Quarter: 2025Q2

REPORT INFORMATION
  Report Type: Spontaneous
  Country: US (occurrence: US)
  Receive Date: 20250324
  Receipt Date: 20250401
  Transmission Date: 20250717
  Serious: No
  Sender: TORRENT
  Company Number: US-TORRENT-00014266

PATIENT
  Age: 36 Year
  Sex: Male
  Weight: 88 kg

DRUGS (1)
  1. TIOPRONIN [Suspect]
     Active Substance: TIOPRONIN
     Indication: Cystinuria
     Dosage: 300 MG TWICE DAILY
     Route: 048
     Dates: start: 20250313

REACTIONS (1)
  - Off label use [Unknown]
